FAERS Safety Report 7795270-6 (Version None)
Quarter: 2011Q4

REPORT INFORMATION
  Report Type: 
  Country: None (occurrence: None)
  Receive Date: 20111004
  Receipt Date: 20110929
  Transmission Date: 20120403
  Serious: Yes (Hospitalization)
  Sender: FDA-Public Use
  Company Number: JP-BAYER-2011-093795

PATIENT
  Age: 71 Year
  Sex: Female
  Weight: 36 kg

DRUGS (1)
  1. NEXAVAR [Suspect]
     Indication: RENAL CELL CARCINOMA
     Dosage: DAILY DOSE 400 MG
     Route: 048
     Dates: start: 20090817, end: 20091105

REACTIONS (2)
  - HEAT EXHAUSTION [None]
  - MALAISE [None]
